FAERS Safety Report 24369918 (Version 1)
Quarter: 2024Q3

REPORT INFORMATION
  Report Type: Spontaneous
  Country: IL (occurrence: IL)
  Receive Date: 20240927
  Receipt Date: 20240927
  Transmission Date: 20241017
  Serious: Yes (Death, Hospitalization)
  Sender: BOEHRINGER INGELHEIM
  Company Number: IL-BoehringerIngelheim-2024-BI-053590

PATIENT
  Age: 56 Year
  Sex: Female

DRUGS (1)
  1. JARDIANCE [Suspect]
     Active Substance: EMPAGLIFLOZIN
     Indication: Latent autoimmune diabetes in adults

REACTIONS (4)
  - Heart failure with preserved ejection fraction [Fatal]
  - Death [Fatal]
  - Diabetic ketoacidosis [Fatal]
  - Off label use [Fatal]
